FAERS Safety Report 24690120 (Version 1)
Quarter: 2024Q4

REPORT INFORMATION
  Report Type: Spontaneous
  Country: US (occurrence: None)
  Receive Date: 20241203
  Receipt Date: 20241203
  Transmission Date: 20250115
  Serious: Yes (Hospitalization)
  Sender: Public
  Company Number: None

PATIENT
  Age: 42 Year
  Sex: Female
  Weight: 55.5 kg

DRUGS (4)
  1. FLUOROURACIL [Suspect]
     Active Substance: FLUOROURACIL
     Dates: end: 20241113
  2. CAMPTOSAR [Suspect]
     Active Substance: IRINOTECAN HYDROCHLORIDE
     Dates: end: 20241113
  3. LEUCOVORIN CALCIUM [Suspect]
     Active Substance: LEUCOVORIN CALCIUM
     Dates: end: 20241113
  4. ELOXATIN [Suspect]
     Active Substance: OXALIPLATIN
     Dates: end: 20241113

REACTIONS (11)
  - Fatigue [None]
  - Abdominal pain [None]
  - Nausea [None]
  - Pain [None]
  - Diarrhoea [None]
  - Impaired gastric emptying [None]
  - Mass [None]
  - Neoplasm recurrence [None]
  - Pyrexia [None]
  - Pneumonia [None]
  - Malnutrition [None]

NARRATIVE: CASE EVENT DATE: 20241120
